FAERS Safety Report 20417011 (Version 2)
Quarter: 2022Q2

REPORT INFORMATION
  Report Type: Report from Study
  Country: DK (occurrence: None)
  Receive Date: 20220202
  Receipt Date: 20220401
  Transmission Date: 20220721
  Serious: Yes (Hospitalization)
  Sender: FDA-Public Use
  Company Number: DK-ROCHE-2966551

PATIENT
  Age: 42 Year
  Sex: Female
  Weight: 57.3 kg

DRUGS (1)
  1. ATEZOLIZUMAB [Suspect]
     Active Substance: ATEZOLIZUMAB
     Indication: Small intestine carcinoma
     Dosage: DAILY DOSE(S) (SPECIFY UNITS) OF INTRAVENOUS 1195.9 INVESTIGATIONAL PRODUCT #1 ATEZOLIZUMAB 1195.9
     Route: 042
     Dates: start: 20210810, end: 20220209

REACTIONS (3)
  - Headache [Recovered/Resolved with Sequelae]
  - Dizziness [Not Recovered/Not Resolved]
  - Metastases to central nervous system [Recovered/Resolved]

NARRATIVE: CASE EVENT DATE: 20211112
